FAERS Safety Report 5121048-8 (Version None)
Quarter: 2006Q4

REPORT INFORMATION
  Report Type: 
  Country: None (occurrence: None)
  Receive Date: 20061002
  Receipt Date: 20060920
  Transmission Date: 20070319
  Serious: Yes (Hospitalization)
  Sender: FDA-Public Use
  Company Number: SPV1-2006-00866

PATIENT
  Age: 39 Year
  Sex: Male

DRUGS (1)
  1. ADDERALL (DEXTROAMPHETAMINE SULFATE, DEXTROAMPHETAMINE SACCHARATE, DEX [Suspect]
     Dosage: INTRA-ARTERIAL
     Route: 013

REACTIONS (3)
  - FINGER AMPUTATION [None]
  - GANGRENE [None]
  - INCORRECT ROUTE OF DRUG ADMINISTRATION [None]
